FAERS Safety Report 10900824 (Version 1)
Quarter: 2015Q1

REPORT INFORMATION
  Report Type: Spontaneous
  Country: GB (occurrence: GB)
  Receive Date: 20150310
  Receipt Date: 20150310
  Transmission Date: 20150721
  Serious: Yes (Other)
  Sender: FDA-Public Use
  Company Number: GB-TEVA-544703ACC

PATIENT
  Age: 28 Year
  Sex: Female
  Weight: 50.8 kg

DRUGS (1)
  1. MIRTAZAPINE. [Suspect]
     Active Substance: MIRTAZAPINE
     Indication: MENTAL DISORDER
     Route: 048
     Dates: start: 20140601, end: 20150213

REACTIONS (3)
  - Anger [Recovered/Resolved]
  - Aggression [Recovered/Resolved]
  - Drug withdrawal syndrome [Unknown]

NARRATIVE: CASE EVENT DATE: 201406
